FAERS Safety Report 8422694 (Version 2)
Quarter: 2012Q4

REPORT INFORMATION
  Report Type: 
  Country: US (occurrence: US)
  Receive Date: 20120223
  Receipt Date: 20121004
  Transmission Date: 20130627
  Serious: Yes (Hospitalization)
  Sender: FDA-Public Use
  Company Number: US-US-EMD SERONO, INC.-7113906

PATIENT
  Age: 49 None
  Sex: Female

DRUGS (4)
  1. REBIF [Suspect]
     Indication: MULTIPLE SCLEROSIS
     Route: 058
     Dates: start: 20100813, end: 201207
  2. NEURONTIN [Concomitant]
     Indication: EPILEPSY
  3. TOPAMAX [Concomitant]
     Indication: EPILEPSY
  4. PROZAC [Concomitant]
     Indication: DEPRESSION

REACTIONS (2)
  - Mobility decreased [Not Recovered/Not Resolved]
  - Injection site pain [Not Recovered/Not Resolved]
